FAERS Safety Report 18648382 (Version 2)
Quarter: 2021Q1

REPORT INFORMATION
  Report Type: Report from Study
  Country: None (occurrence: US)
  Receive Date: 20201222
  Receipt Date: 20210115
  Transmission Date: 20210419
  Serious: Yes (Other)
  Sender: FDA-Public Use
  Company Number: US-ABBVIE-20K-163-3697581-00

PATIENT
  Age: 63 Year
  Sex: Female
  Weight: 71.96 kg

DRUGS (10)
  1. BUDESONIDE. [Concomitant]
     Active Substance: BUDESONIDE
     Indication: COLITIS ULCERATIVE
  2. HUMIRA [Suspect]
     Active Substance: ADALIMUMAB
     Route: 058
  3. VITAMIN C [Concomitant]
     Active Substance: ASCORBIC ACID
     Indication: SUPPLEMENTATION THERAPY
  4. CALCIUM [Concomitant]
     Active Substance: CALCIUM
     Indication: SUPPLEMENTATION THERAPY
  5. HUMIRA [Suspect]
     Active Substance: ADALIMUMAB
     Indication: COLITIS ULCERATIVE
     Dosage: DAY 1
     Route: 058
     Dates: start: 20201218, end: 20201218
  6. HUMIRA [Suspect]
     Active Substance: ADALIMUMAB
     Indication: COLITIS ULCERATIVE
     Route: 058
     Dates: start: 20171013, end: 20191222
  7. FLECAINIDE [Concomitant]
     Active Substance: FLECAINIDE
     Indication: VENTRICULAR EXTRASYSTOLES
  8. PROBIOTIC [Concomitant]
     Active Substance: PROBIOTICS NOS
     Indication: SUPPLEMENTATION THERAPY
  9. HUMIRA [Suspect]
     Active Substance: ADALIMUMAB
     Dosage: DAY 15
     Route: 058
     Dates: start: 20210101, end: 20210101
  10. VITAMIN D NOS [Concomitant]
     Active Substance: VITAMIN D NOS
     Indication: SUPPLEMENTATION THERAPY

REACTIONS (9)
  - Polyp [Recovered/Resolved]
  - Haemorrhoids [Not Recovered/Not Resolved]
  - Faecal elastase concentration abnormal [Not Recovered/Not Resolved]
  - Diverticulum [Not Recovered/Not Resolved]
  - Haemorrhage [Not Recovered/Not Resolved]
  - Colitis ulcerative [Recovering/Resolving]
  - Pancreatic failure [Not Recovered/Not Resolved]
  - Squamous cell carcinoma [Recovered/Resolved]
  - Weight decreased [Recovered/Resolved]

NARRATIVE: CASE EVENT DATE: 201802
